FAERS Safety Report 12559253 (Version 1)
Quarter: 2016Q3

REPORT INFORMATION
  Report Type: Spontaneous
  Country: US (occurrence: US)
  Receive Date: 20160715
  Receipt Date: 20160715
  Transmission Date: 20161109
  Serious: Yes (Other)
  Sender: FDA-Public Use
  Company Number: US-ZYDUS-011567

PATIENT
  Age: 39 Year
  Sex: Male

DRUGS (1)
  1. DOXYCYCLINE. [Suspect]
     Active Substance: DOXYCYCLINE
     Indication: LYME DISEASE
     Route: 048

REACTIONS (13)
  - Jarisch-Herxheimer reaction [Unknown]
  - Splenic infarction [Unknown]
  - Pyrexia [Unknown]
  - Pain [Recovered/Resolved]
  - Headache [Unknown]
  - Night sweats [Unknown]
  - Chills [Unknown]
  - Thrombocytosis [Unknown]
  - Dyspnoea [Unknown]
  - Myalgia [Unknown]
  - Malaise [Unknown]
  - Rash erythematous [Recovered/Resolved]
  - Normochromic normocytic anaemia [Unknown]
